FAERS Safety Report 9900691 (Version 1)
Quarter: 2014Q1

REPORT INFORMATION
  Report Type: Report from Study
  Country: US (occurrence: US)
  Receive Date: 20140217
  Receipt Date: 20140217
  Transmission Date: 20141002
  Serious: Yes (Other)
  Sender: FDA-Public Use
  Company Number: US-ROCHE-1330438

PATIENT
  Sex: Female

DRUGS (4)
  1. AVASTIN [Suspect]
     Indication: AGE-RELATED MACULAR DEGENERATION
     Dosage: 1.25 MG/0.05 ML.
     Route: 050
  2. GENTAMYCIN [Concomitant]
  3. VIGAMOX [Concomitant]
  4. OFLOXACIN [Concomitant]

REACTIONS (4)
  - Blepharitis [Unknown]
  - Vitreous floaters [Not Recovered/Not Resolved]
  - Conjunctivochalasis [Unknown]
  - Trichiasis [Unknown]
